FAERS Safety Report 12204025 (Version 1)
Quarter: 2016Q1

REPORT INFORMATION
  Report Type: Spontaneous
  Country: US (occurrence: None)
  Receive Date: 20160322
  Receipt Date: 20160322
  Transmission Date: 20160526
  Serious: No
  Sender: FDA-Public Use
  Company Number: None

PATIENT
  Age: 47 Year
  Sex: Female

DRUGS (1)
  1. ENBREL [Suspect]
     Active Substance: ETANERCEPT
     Indication: RHEUMATOID ARTHRITIS
     Route: 058
     Dates: start: 20160201, end: 20160301

REACTIONS (3)
  - Injection site inflammation [None]
  - Injection site erythema [None]
  - Injection site warmth [None]

NARRATIVE: CASE EVENT DATE: 20160301
